FAERS Safety Report 4708262-8 (Version None)
Quarter: 2005Q3

REPORT INFORMATION
  Report Type: 
  Country: None (occurrence: None)
  Receive Date: 20050705
  Receipt Date: 20050705
  Transmission Date: 20060218
  Serious: Yes (Other)
  Sender: FDA-Public Use
  Company Number: None

PATIENT
  Sex: Female
  Weight: 75 kg

DRUGS (11)
  1. OXALIPLATIN [Suspect]
     Indication: COLON CANCER
     Dosage: 85 MG/M2 IV DAY 1
     Dates: start: 20050428
  2. LEUCOVORIN [Suspect]
     Dosage: 400 MG/M2 IV DAY 1
  3. FLUOROURACIL [Suspect]
     Dosage: 400 MG/M2 IV BOLUS DAY 1
  4. FLUOROURACIL [Suspect]
     Dosage: 2400 MG/M2 CIV OVER 46 HOURS ON DAYS 1 AND 2
  5. COMPAZINE [Concomitant]
  6. DECADRON [Concomitant]
  7. DESYREL [Concomitant]
  8. KYTRIL [Concomitant]
  9. NEXIUM [Concomitant]
  10. VICODIN [Concomitant]
  11. ZOFRAN [Concomitant]

REACTIONS (10)
  - CATHETER SITE INFECTION [None]
  - DIALYSIS [None]
  - DIFFICULTY IN WALKING [None]
  - GASTROINTESTINAL TUBE INSERTION [None]
  - INFARCTION [None]
  - MEMORY IMPAIRMENT [None]
  - MENTAL IMPAIRMENT [None]
  - MOBILITY DECREASED [None]
  - RENAL IMPAIRMENT [None]
  - TRACHEOSTOMY [None]
